FAERS Safety Report 4446583-7 (Version None)
Quarter: 2004Q3

REPORT INFORMATION
  Report Type: 
  Country: None (occurrence: None)
  Receive Date: 20040908
  Receipt Date: 20040826
  Transmission Date: 20050211
  Serious: Yes (Other)
  Sender: FDA-Public Use
  Company Number: 2004060018

PATIENT
  Age: 40 Year
  Sex: Female

DRUGS (5)
  1. NEURONTIN [Suspect]
     Indication: TIC
     Dosage: ORAL
     Route: 048
  2. CONJUGATED ESTROGEN [Concomitant]
  3. FENTANYL [Concomitant]
  4. TORSEMIDE [Concomitant]
  5. ALL OTHER THERAPEUTIC PRODUCTS [Concomitant]

REACTIONS (7)
  - BLOOD POTASSIUM DECREASED [None]
  - BLOOD PROLACTIN INCREASED [None]
  - DISEASE RECURRENCE [None]
  - MALAISE [None]
  - NAUSEA [None]
  - TIC [None]
  - VOMITING [None]
